FAERS Safety Report 4754102-0 (Version None)
Quarter: 2005Q3

REPORT INFORMATION
  Report Type: 
  Country: None (occurrence: None)
  Receive Date: 20050824
  Receipt Date: 20050613
  Transmission Date: 20060218
  Serious: No
  Sender: FDA-Public Use
  Company Number: SUS1-2005-00479

PATIENT
  Age: 81 Year
  Sex: Female
  Weight: 67.6 kg

DRUGS (8)
  1. FOSRENOL [Suspect]
     Dates: start: 20050301
  2. IRON (IRON) [Concomitant]
  3. GLYBURIDE [Concomitant]
  4. HECTOROL [Concomitant]
  5. EYE DROPS (TETRYZOLINE HYDROCHLORIDE) [Concomitant]
  6. TOPROL-XL [Concomitant]
  7. FUROSEMIDE [Concomitant]
  8. NORVASC/GRC/ (AMLODIPINE) [Concomitant]

REACTIONS (1)
  - MUSCLE SPASMS [None]
